FAERS Safety Report 16999307 (Version 1)
Quarter: 2019Q4

REPORT INFORMATION
  Report Type: Spontaneous
  Country: US (occurrence: US)
  Receive Date: 20191105
  Receipt Date: 20191105
  Transmission Date: 20200122
  Serious: Yes (Death)
  Sender: FDA-Public Use
  Company Number: None

PATIENT
  Age: 81 Year
  Sex: Female

DRUGS (12)
  1. FLUOXETINE [Concomitant]
     Active Substance: FLUOXETINE HYDROCHLORIDE
  2. TADALAFIL. [Suspect]
     Active Substance: TADALAFIL
     Indication: ENDOCARDITIS
     Route: 048
     Dates: start: 20181015, end: 20191101
  3. SPIRONOLACT [Concomitant]
     Active Substance: SPIRONOLACTONE
  4. TORSEMIDE. [Concomitant]
     Active Substance: TORSEMIDE
  5. METOLAZONE. [Concomitant]
     Active Substance: METOLAZONE
  6. ALBUTEROL. [Concomitant]
     Active Substance: ALBUTEROL
  7. DIGOX [Concomitant]
     Active Substance: DIGOXIN
  8. ALLOPURINOL. [Concomitant]
     Active Substance: ALLOPURINOL
  9. DIGOXIN. [Concomitant]
     Active Substance: DIGOXIN
  10. FUROSEMIDE. [Concomitant]
     Active Substance: FUROSEMIDE
  11. LEVOTHYROXINE. [Concomitant]
     Active Substance: LEVOTHYROXINE
  12. METOPROLOL. [Concomitant]
     Active Substance: METOPROLOL

REACTIONS (1)
  - Death [None]

NARRATIVE: CASE EVENT DATE: 20191101
